FAERS Safety Report 25183007 (Version 3)
Quarter: 2025Q2

REPORT INFORMATION
  Report Type: Spontaneous
  Country: US (occurrence: US)
  Receive Date: 20250410
  Receipt Date: 20250502
  Transmission Date: 20250716
  Serious: Yes (Hospitalization)
  Sender: CHIESI
  Company Number: US-CHIESI-2025CHF02305

PATIENT
  Age: 3 Year
  Sex: Male

DRUGS (12)
  1. BETHKIS [Suspect]
     Active Substance: TOBRAMYCIN
     Indication: Lung disorder
     Dates: start: 202112
  2. BETHKIS [Suspect]
     Active Substance: TOBRAMYCIN
     Indication: Respiratory disorder
     Dosage: UNK, BID
     Dates: start: 202407
  3. BETHKIS [Suspect]
     Active Substance: TOBRAMYCIN
     Indication: Chronic respiratory failure
  4. BETHKIS [Suspect]
     Active Substance: TOBRAMYCIN
     Indication: Hypoxia
  5. BETHKIS [Suspect]
     Active Substance: TOBRAMYCIN
     Indication: Hypercapnia
  6. BETHKIS [Suspect]
     Active Substance: TOBRAMYCIN
     Indication: Acute respiratory failure
  7. BETHKIS [Suspect]
     Active Substance: TOBRAMYCIN
     Indication: Chronic respiratory failure
  8. BETHKIS [Suspect]
     Active Substance: TOBRAMYCIN
     Indication: Off label use
  9. BETHKIS [Suspect]
     Active Substance: TOBRAMYCIN
     Indication: Tracheostomy
  10. LEVOCARNITINE [Concomitant]
     Active Substance: LEVOCARNITINE
     Indication: Product used for unknown indication
  11. NYSTATIN [Concomitant]
     Active Substance: NYSTATIN
     Indication: Product used for unknown indication
  12. ACETYLCYSTEINE [Concomitant]
     Active Substance: ACETYLCYSTEINE
     Indication: Product used for unknown indication

REACTIONS (11)
  - Ill-defined disorder [Unknown]
  - Myoclonus [Unknown]
  - Tracheitis [Unknown]
  - Stomatitis [Unknown]
  - Rhinovirus infection [Unknown]
  - Enterovirus infection [Unknown]
  - Deep vein thrombosis [Unknown]
  - Somnolence [Unknown]
  - Off label use [Not Recovered/Not Resolved]
  - Off label use [Not Recovered/Not Resolved]
  - Off label use [Not Recovered/Not Resolved]

NARRATIVE: CASE EVENT DATE: 20211201
